FAERS Safety Report 12246044 (Version 1)
Quarter: 2016Q2

REPORT INFORMATION
  Report Type: Spontaneous
  Country: US (occurrence: None)
  Receive Date: 20160406
  Receipt Date: 20160406
  Transmission Date: 20160815
  Serious: Yes (Hospitalization)
  Sender: FDA-Public Use
  Company Number: None

PATIENT
  Age: 50 Year
  Sex: Female
  Weight: 33.7 kg

DRUGS (6)
  1. LEVOFLOXACIN, 500MG [Suspect]
     Active Substance: LEVOFLOXACIN
     Indication: UPPER RESPIRATORY TRACT INFECTION
     Route: 048
     Dates: start: 20160302, end: 20160404
  2. ROBITUSSIN (GUAIFENESIN) [Concomitant]
     Active Substance: GUAIFENESIN
  3. PROAIR HFA [Concomitant]
     Active Substance: ALBUTEROL SULFATE
  4. FLOVENT [Concomitant]
     Active Substance: FLUTICASONE PROPIONATE
  5. PREDNISONE. [Concomitant]
     Active Substance: PREDNISONE
  6. MULTI VIT [Concomitant]

REACTIONS (3)
  - Mental status changes [None]
  - Confusional state [None]
  - Ammonia increased [None]

NARRATIVE: CASE EVENT DATE: 20160404
